FAERS Safety Report 17056243 (Version 1)
Quarter: 2019Q4

REPORT INFORMATION
  Report Type: Spontaneous
  Country: DE (occurrence: DE)
  Receive Date: 20191121
  Receipt Date: 20191121
  Transmission Date: 20200122
  Serious: Yes (Hospitalization)
  Sender: FDA-Public Use
  Company Number: DE-TEVA-2019-DE-1137723

PATIENT
  Sex: Female

DRUGS (1)
  1. COTRIM [Suspect]
     Active Substance: SULFAMETHOXAZOLE\TRIMETHOPRIM
     Indication: CYSTITIS NONINFECTIVE
     Dosage: 1 TABLET CONTAINS 400 MG SULFAMETHOXAZOLE AND 80 MG TRIMETHOPRIM
     Route: 048

REACTIONS (1)
  - Anaphylactic shock [Unknown]
